FAERS Safety Report 14370746 (Version 2)
Quarter: 2019Q4

REPORT INFORMATION
  Report Type: Spontaneous
  Country: US (occurrence: US)
  Receive Date: 20180110
  Receipt Date: 20191024
  Transmission Date: 20200122
  Serious: Yes (Other)
  Sender: FDA-Public Use
  Company Number: US-PFIZER INC-2018007211

PATIENT
  Age: 55 Year
  Sex: Female
  Weight: 61.23 kg

DRUGS (3)
  1. IBRANCE [Suspect]
     Active Substance: PALBOCICLIB
     Dosage: 100 MG, CYCLIC (DAILY DAYS 1-21)
     Dates: end: 20171222
  2. IBRANCE [Suspect]
     Active Substance: PALBOCICLIB
     Indication: BREAST CANCER
     Dosage: 125 MG, CYCLIC (ONCE A DAY FOR DAYS 1-21)
     Dates: start: 201707
  3. IBRANCE [Suspect]
     Active Substance: PALBOCICLIB
     Dosage: 75 MG, CYCLIC (1 CAPSULE 1 TABLET DAILY FOR 21 DAYS ON AND 14 DAYS OFF)

REACTIONS (1)
  - Platelet count decreased [Unknown]
